FAERS Safety Report 12502487 (Version 2)
Quarter: 2016Q4

REPORT INFORMATION
  Report Type: Report from Study
  Country: ES (occurrence: ES)
  Receive Date: 20160627
  Receipt Date: 20161215
  Transmission Date: 20170207
  Serious: Yes (Hospitalization)
  Sender: FDA-Public Use
  Company Number: ES-IPSEN BIOPHARMACEUTICALS, INC.-2016-03935

PATIENT
  Age: 4 Year
  Sex: Female
  Weight: 13 kg

DRUGS (5)
  1. INCRELEX [Suspect]
     Active Substance: MECASERMIN
     Route: 058
     Dates: start: 20120601, end: 20120608
  2. INCRELEX [Suspect]
     Active Substance: MECASERMIN
     Indication: ACQUIRED GROWTH HORMONE RESISTANCE
     Route: 058
     Dates: start: 2014
  3. INCRELEX [Suspect]
     Active Substance: MECASERMIN
     Route: 058
  4. INCRELEX [Suspect]
     Active Substance: MECASERMIN
     Indication: PRIMARY INSULIN LIKE GROWTH FACTOR-1 DEFICIENCY
     Route: 058
     Dates: start: 20120608, end: 201401
  5. INCRELEX [Suspect]
     Active Substance: MECASERMIN
     Route: 058
     Dates: start: 20120516, end: 20120601

REACTIONS (3)
  - Tonsillar hypertrophy [Recovered/Resolved]
  - Tonsillectomy [Recovered/Resolved]
  - Hypoglycaemia [Recovered/Resolved]

NARRATIVE: CASE EVENT DATE: 20131009
